FAERS Safety Report 7000374-1 (Version None)
Quarter: 2010Q3

REPORT INFORMATION
  Report Type: 
  Country: None (occurrence: None)
  Receive Date: 20100920
  Receipt Date: 20091020
  Transmission Date: 20110219
  Serious: Yes (Other)
  Sender: FDA-Public Use
  Company Number: US-ASTRAZENECA-2009UW03714

PATIENT
  Age: 550 Month
  Sex: Male
  Weight: 122.5 kg

DRUGS (4)
  1. SEROQUEL [Suspect]
     Indication: DEPRESSION
     Route: 048
     Dates: start: 20030101, end: 20061112
  2. GEODON [Concomitant]
     Dosage: 60-80 MG
     Dates: start: 20060101
  3. RISPERDAL [Concomitant]
     Dates: start: 20030101
  4. RANITIDINE [Concomitant]

REACTIONS (2)
  - DIABETIC COMA [None]
  - TYPE 1 DIABETES MELLITUS [None]
